FAERS Safety Report 20703336 (Version 1)
Quarter: 2022Q2

REPORT INFORMATION
  Report Type: Spontaneous
  Country: FI (occurrence: FI)
  Receive Date: 20220413
  Receipt Date: 20220413
  Transmission Date: 20220720
  Serious: Yes (Other)
  Sender: FDA-Public Use
  Company Number: CLT-FI-2022-1338-246671

PATIENT
  Sex: Male

DRUGS (2)
  1. PREGABALIN [Suspect]
     Active Substance: PREGABALIN
  2. BUPRENORPHINE [Suspect]
     Active Substance: BUPRENORPHINE
     Route: 050

REACTIONS (3)
  - Myelopathy [Unknown]
  - Substance abuse [Unknown]
  - Rhabdomyolysis [Unknown]
